FAERS Safety Report 9344847 (Version 7)
Quarter: 2016Q2

REPORT INFORMATION
  Report Type: Spontaneous
  Country: US (occurrence: US)
  Receive Date: 20130612
  Receipt Date: 20160609
  Transmission Date: 20160815
  Serious: Yes (Death, Hospitalization, Other)
  Sender: FDA-Public Use
  Company Number: US-GLAXOSMITHKLINE-A1026700A

PATIENT
  Age: 82 Year
  Sex: Male

DRUGS (6)
  1. FLOLAN [Suspect]
     Active Substance: EPOPROSTENOL SODIUM
     Dosage: UNK
     Dates: start: 20070122
  2. FLOLAN [Suspect]
     Active Substance: EPOPROSTENOL SODIUM
     Dosage: 21 NG/KG/MIN CONTINUOUSLY
     Dates: start: 20070122
  3. FLOLAN [Suspect]
     Active Substance: EPOPROSTENOL SODIUM
     Dosage: UNK
  4. FLOLAN [Suspect]
     Active Substance: EPOPROSTENOL SODIUM
     Indication: PULMONARY ARTERIAL HYPERTENSION
     Dosage: 21NG/KG/MIN, VIAL STRENGTH 1.5 MG, CONCENTRATION OF 30,000NG/ML CONTINUOUSLY20NG/KG/MIN, VIAL S[...]
     Route: 042
     Dates: start: 20070122
  5. FLOLAN [Suspect]
     Active Substance: EPOPROSTENOL SODIUM
     Dosage: 21 NG/KG/MIN CONTINUOUSLY
     Dates: start: 20070122
  6. FLOLAN [Suspect]
     Active Substance: EPOPROSTENOL SODIUM
     Dosage: UNK
     Dates: start: 20070122

REACTIONS (5)
  - Complication associated with device [Unknown]
  - Prostatic disorder [Unknown]
  - Hospitalisation [Unknown]
  - Death [Fatal]
  - Catheter placement [Unknown]

NARRATIVE: CASE EVENT DATE: 20160223
